FAERS Safety Report 7414682-3 (Version None)
Quarter: 2011Q2

REPORT INFORMATION
  Report Type: 
  Country: None (occurrence: None)
  Receive Date: 20110414
  Receipt Date: 20091114
  Transmission Date: 20111010
  Serious: Yes (Hospitalization, Other)
  Sender: FDA-Public Use
  Company Number: US-BAYER-200939571NA

PATIENT
  Sex: Male
  Weight: 96 kg

DRUGS (17)
  1. MANNITOL [Concomitant]
     Dosage: 50 ML, CARDIOPULMONARY BYPASS
     Dates: start: 20060323, end: 20060323
  2. REGLAN [Concomitant]
  3. ATENOLOL [Concomitant]
     Dosage: UNK
     Dates: start: 20060322
  4. HEPARIN [Concomitant]
     Dosage: UNK
     Dates: start: 20060323
  5. LIDOCAINE [Concomitant]
     Dosage: 6, CARDIOPULMONARY BYPASS
     Dates: start: 20060323, end: 20060323
  6. LISINOPRIL [Concomitant]
  7. HYDROCHLOROTHIAZIDE [Concomitant]
     Dosage: UNK
     Dates: start: 20060322
  8. LASIX [Concomitant]
  9. HUMULIN 70/30 [Concomitant]
     Dosage: UNK
     Dates: start: 20060322
  10. PAPAVERINE [Concomitant]
     Dosage: UNK
     Dates: start: 20060323
  11. COREG [Concomitant]
  12. CELEBREX [Concomitant]
  13. GLUCOPHAGE [Concomitant]
     Dosage: UNK
     Dates: start: 20060322
  14. SODIUM BICARBONATE [Concomitant]
     Dosage: 50 ML, CARDIOPULMONARY BYPASS
     Route: 042
     Dates: start: 20060323, end: 20060323
  15. TRASYLOL [Suspect]
     Indication: CORONARY ARTERY BYPASS
     Dosage: 200 ML, PRIME
     Route: 042
     Dates: start: 20060323, end: 20060323
  16. HEPARIN [Concomitant]
     Dosage: 38000 U, CARDIOPULMONARY BYPASS
     Route: 042
     Dates: start: 20060323, end: 20060323
  17. ALBUMIN (HUMAN) [Concomitant]
     Dosage: 50 ML, CARDIOPULMONARY BYPASS
     Dates: start: 20060323, end: 20060323

REACTIONS (9)
  - PULMONARY OEDEMA [None]
  - RENAL FAILURE [None]
  - LOW CARDIAC OUTPUT SYNDROME [None]
  - INJURY [None]
  - UNEVALUABLE EVENT [None]
  - MYOCARDIAL INFARCTION [None]
  - PAIN [None]
  - RENAL FAILURE ACUTE [None]
  - ILEUS [None]
